FAERS Safety Report 9503695 (Version 4)
Quarter: 2014Q2

REPORT INFORMATION
  Report Type: Spontaneous
  Country: US (occurrence: None)
  Receive Date: 20130107
  Receipt Date: 20130724
  Transmission Date: 20141212
  Serious: No
  Sender: FDA-Public Use
  Company Number: PHEH2012US020340

PATIENT
  Age: 45 Year
  Sex: Female

DRUGS (2)
  1. GILENYA [Suspect]
     Indication: MULTIPLE SCLEROSIS
     Route: 048
     Dates: start: 20101206, end: 20130129
  2. CYMBALTA [Concomitant]

REACTIONS (4)
  - Central nervous system lesion [None]
  - Arthralgia [None]
  - Multiple sclerosis relapse [None]
  - Confusional state [None]
